FAERS Safety Report 25892156 (Version 1)
Quarter: 2025Q4

REPORT INFORMATION
  Report Type: Report from Study
  Country: AR (occurrence: AR)
  Receive Date: 20251007
  Receipt Date: 20251007
  Transmission Date: 20260117
  Serious: Yes (Hospitalization)
  Sender: ABBVIE
  Company Number: AR-ABBVIE-6319139

PATIENT
  Age: 73 Year
  Sex: Female

DRUGS (2)
  1. RINVOQ [Suspect]
     Active Substance: UPADACITINIB
     Indication: Rheumatoid arthritis
     Dosage: FORM STRENGTH 15 MG.
     Route: 048
     Dates: start: 20250216, end: 202505
  2. RINVOQ [Suspect]
     Active Substance: UPADACITINIB
     Indication: Rheumatoid arthritis
     Dosage: FIRST ADMIN DATE:2025?FORM STRENGTH 15 MG.
     Route: 048
     Dates: end: 202509

REACTIONS (6)
  - Urinary tract infection [Unknown]
  - Herpes zoster [Unknown]
  - Urinary tract infection bacterial [Recovered/Resolved]
  - Rheumatoid arthritis [Unknown]
  - Hypoaesthesia [Unknown]
  - Peripheral swelling [Unknown]

NARRATIVE: CASE EVENT DATE: 20250101
